FAERS Safety Report 17255704 (Version 1)
Quarter: 2020Q1

REPORT INFORMATION
  Report Type: Spontaneous
  Country: CA (occurrence: CA)
  Receive Date: 20200110
  Receipt Date: 20200110
  Transmission Date: 20200409
  Serious: Yes (Life-Threatening, Hospitalization, Other)
  Sender: FDA-Public Use
  Company Number: CA-B.I. PHARMACEUTICALS,INC./RIDGEFIELD-2020-BI-001400

PATIENT
  Age: 10 Year
  Sex: Male

DRUGS (7)
  1. CATAPRES [Suspect]
     Active Substance: CLONIDINE HYDROCHLORIDE
     Indication: DYSTONIA
     Route: 048
  2. DEXMEDETOMIDINE. [Concomitant]
     Active Substance: DEXMEDETOMIDINE
     Indication: DYSTONIA
     Dosage: DOSE: 1.2 UG/KG
     Route: 042
  3. LORAZEPAM. [Suspect]
     Active Substance: LORAZEPAM
     Indication: DYSTONIA
     Route: 048
  4. CHLORPROMAZINE. [Suspect]
     Active Substance: CHLORPROMAZINE
     Indication: HYPERKINESIA
     Route: 065
  5. KETAMINE [Suspect]
     Active Substance: KETAMINE
     Indication: DYSTONIA
     Route: 065
  6. APO-MIDAZOLAM [Suspect]
     Active Substance: MIDAZOLAM HYDROCHLORIDE
     Indication: DYSTONIA
     Dosage: DOSAGE FORM: LIQUID INTRAMUSCULAR
     Route: 042
  7. CHLORAL HYDRATE [Suspect]
     Active Substance: CHLORAL HYDRATE
     Indication: DYSTONIA
     Route: 048

REACTIONS (4)
  - Drug intolerance [Recovered/Resolved]
  - Condition aggravated [Recovered/Resolved]
  - Treatment failure [Recovered/Resolved]
  - Dystonia [Recovered/Resolved]
